FAERS Safety Report 11650666 (Version 1)
Quarter: 2015Q4

REPORT INFORMATION
  Report Type: Spontaneous
  Country: FR (occurrence: FR)
  Receive Date: 20151021
  Receipt Date: 20151021
  Transmission Date: 20160304
  Serious: Yes (Life-Threatening, Hospitalization)
  Sender: FDA-Public Use
  Company Number: FR-ASTRAZENECA-2015SF00738

PATIENT
  Age: 16354 Day
  Sex: Male

DRUGS (9)
  1. CALCIPARINE [Concomitant]
     Active Substance: HEPARIN CALCIUM
  2. INEXIUM [Suspect]
     Active Substance: ESOMEPRAZOLE
     Indication: GASTRIC ULCER
     Route: 048
     Dates: end: 20150914
  3. TOPALGIC [Concomitant]
     Active Substance: TRAMADOL
  4. TAZOCILLINE [Suspect]
     Active Substance: PIPERACILLIN SODIUM\TAZOBACTAM SODIUM
     Indication: SEPTIC SHOCK
     Route: 042
     Dates: start: 20150818, end: 20150914
  5. TRIFLUCAN [Suspect]
     Active Substance: FLUCONAZOLE
     Indication: SEPTIC SHOCK
     Route: 065
     Dates: start: 20150818, end: 20150914
  6. BRICANYL [Concomitant]
     Active Substance: TERBUTALINE SULFATE
  7. ATROVENT [Concomitant]
     Active Substance: IPRATROPIUM BROMIDE
  8. PERFALGAN [Concomitant]
     Active Substance: ACETAMINOPHEN
  9. LOXEN [Concomitant]
     Active Substance: NICARDIPINE HYDROCHLORIDE

REACTIONS (5)
  - Drug reaction with eosinophilia and systemic symptoms [Recovering/Resolving]
  - Septic shock [Unknown]
  - Oesophageal rupture [Unknown]
  - Peritonitis [Unknown]
  - Gastric ulcer perforation [Unknown]

NARRATIVE: CASE EVENT DATE: 20150914
